FAERS Safety Report 6696268-1 (Version None)
Quarter: 2010Q2

REPORT INFORMATION
  Report Type: 
  Country: None (occurrence: None)
  Receive Date: 20100426
  Receipt Date: 20100419
  Transmission Date: 20101027
  Serious: Yes (Other)
  Sender: FDA-Public Use
  Company Number: ES-ASTRAZENECA-2010SE17917

PATIENT
  Age: 40 Year
  Sex: Female
  Weight: 55 kg

DRUGS (2)
  1. EMLA [Suspect]
     Indication: DEPILATION
     Route: 061
     Dates: start: 20100101
  2. IRON I.N.N. [Concomitant]
     Indication: ANAEMIA
     Route: 048

REACTIONS (3)
  - CYANOSIS [None]
  - DIZZINESS [None]
  - DYSPNOEA [None]
